FAERS Safety Report 13503411 (Version 1)
Quarter: 2017Q2

REPORT INFORMATION
  Report Type: Spontaneous
  Country: FR (occurrence: FR)
  Receive Date: 20170502
  Receipt Date: 20170502
  Transmission Date: 20170830
  Serious: Yes (Hospitalization, Other)
  Sender: FDA-Public Use
  Company Number: FR-PFIZER INC-2017182327

PATIENT
  Age: 57 Year
  Sex: Male

DRUGS (5)
  1. LYSANXIA [Suspect]
     Active Substance: PRAZEPAM
     Dosage: 10 MG, 3X/DAY
     Route: 048
  2. SERESTA [Suspect]
     Active Substance: OXAZEPAM
     Dosage: UNK
     Route: 048
     Dates: end: 201612
  3. XANAX [Suspect]
     Active Substance: ALPRAZOLAM
     Dosage: UNK
     Route: 048
     Dates: end: 201612
  4. PAROXETINE. [Concomitant]
     Active Substance: PAROXETINE
     Dosage: 20 MG, 2X/DAY IN THE MORNING AND IN THE EVENING
  5. THERALENE [Suspect]
     Active Substance: TRIMEPRAZINE
     Dosage: 10 MG, 1X/DAY AT BEDTIME
     Route: 048

REACTIONS (3)
  - Alcohol abuse [Recovering/Resolving]
  - Cholelithiasis [Unknown]
  - Drug use disorder [Unknown]
